FAERS Safety Report 12791614 (Version 5)
Quarter: 2018Q2

REPORT INFORMATION
  Report Type: Report from Study
  Country: PL (occurrence: PL)
  Receive Date: 20160929
  Receipt Date: 20180611
  Transmission Date: 20180711
  Serious: Yes (Disabling, Other)
  Sender: FDA-Public Use
  Company Number: PL-ROCHE-1836308

PATIENT
  Age: 52 Year
  Sex: Male

DRUGS (3)
  1. PREGABALIN. [Concomitant]
     Active Substance: PREGABALIN
  2. COTELLIC [Suspect]
     Active Substance: COBIMETINIB
     Indication: MALIGNANT MELANOMA
     Dosage: ONCE DAILY
     Route: 048
     Dates: start: 201605, end: 2017
  3. ZELBORAF [Suspect]
     Active Substance: VEMURAFENIB
     Indication: MALIGNANT MELANOMA
     Dosage: ON 31/JAN/2017, HE RECEIVED HER MOST RECENT DOSE OF VEMURAFENIB.
     Route: 048
     Dates: start: 20150722, end: 2017

REACTIONS (5)
  - Polyneuropathy [Recovered/Resolved]
  - Muscular weakness [Unknown]
  - Neuralgia [Unknown]
  - Facial paralysis [Recovered/Resolved]
  - Disease progression [Unknown]

NARRATIVE: CASE EVENT DATE: 20160829
